FAERS Safety Report 16773448 (Version 1)
Quarter: 2019Q3

REPORT INFORMATION
  Report Type: Spontaneous
  Country: GB (occurrence: GB)
  Receive Date: 20190904
  Receipt Date: 20190904
  Transmission Date: 20191005
  Serious: Yes (Disabling)
  Sender: FDA-Public Use
  Company Number: GB-PFIZER INC-2019376041

PATIENT
  Age: 52 Year
  Sex: Female
  Weight: 83 kg

DRUGS (1)
  1. PREMARIN [Suspect]
     Active Substance: ESTROGENS, CONJUGATED
     Dosage: 1.25 MG ONCE A DAY
     Route: 048
     Dates: start: 20190501, end: 20190725

REACTIONS (8)
  - Fatigue [Unknown]
  - Cerebral venous thrombosis [Unknown]
  - Menopausal symptoms [Unknown]
  - Hemiparesis [Unknown]
  - Speech disorder [Unknown]
  - Amnesia [Unknown]
  - Confusional state [Unknown]
  - Visual impairment [Unknown]

NARRATIVE: CASE EVENT DATE: 20190501
